FAERS Safety Report 8327779-0 (Version None)
Quarter: 2012Q2

REPORT INFORMATION
  Report Type: 
  Country: None (occurrence: None)
  Receive Date: 20120502
  Receipt Date: 20120428
  Transmission Date: 20120825
  Serious: No
  Sender: FDA-Public Use
  Company Number: US-PFIZER INC-2012105435

PATIENT
  Sex: Female
  Weight: 58.503 kg

DRUGS (6)
  1. PRISTIQ [Suspect]
     Indication: STRESS
     Dosage: 50 MG, 1X/DAY
     Route: 048
     Dates: start: 20120425, end: 20120428
  2. XANAX [Concomitant]
     Indication: NERVOUSNESS
  3. THYROID TAB [Concomitant]
     Indication: AUTOIMMUNE THYROIDITIS
     Dosage: UNK
  4. XANAX [Concomitant]
     Indication: TREMOR
     Dosage: 0.5 MG, UNK
  5. PRISTIQ [Suspect]
     Indication: HEADACHE
  6. XANAX [Concomitant]
     Indication: FEELING JITTERY

REACTIONS (7)
  - NECK PAIN [None]
  - JOINT STIFFNESS [None]
  - BACK PAIN [None]
  - MUSCULOSKELETAL PAIN [None]
  - GAIT DISTURBANCE [None]
  - MUSCULOSKELETAL STIFFNESS [None]
  - PAIN IN EXTREMITY [None]
